FAERS Safety Report 9507254 (Version 2)
Quarter: 2013Q3

REPORT INFORMATION
  Report Type: Report from Study
  Country: US (occurrence: US)
  Receive Date: 20130909
  Receipt Date: 20130920
  Transmission Date: 20140515
  Serious: Yes (Death)
  Sender: FDA-Public Use
  Company Number: PHEH2013US018796

PATIENT
  Age: 58 Year
  Sex: Female
  Weight: 88 kg

DRUGS (1)
  1. SANDOSTATIN LAR DEPOT [Suspect]
     Indication: CARCINOID TUMOUR
     Dosage: 30 MG, UNK
     Route: 030
     Dates: start: 20130701, end: 20130719

REACTIONS (1)
  - Death [Fatal]
